FAERS Safety Report 24899930 (Version 1)
Quarter: 2025Q1

REPORT INFORMATION
  Report Type: Spontaneous
  Country: US (occurrence: US)
  Receive Date: 20250129
  Receipt Date: 20250129
  Transmission Date: 20250409
  Serious: Yes (Other)
  Sender: MERCK
  Company Number: US-009507513-2501USA010029

PATIENT
  Age: 85 Year
  Sex: Female

DRUGS (2)
  1. VERQUVO [Suspect]
     Active Substance: VERICIGUAT
     Route: 048
  2. ELIQUIS [Concomitant]
     Active Substance: APIXABAN

REACTIONS (1)
  - Cerebrovascular accident [Unknown]
